FAERS Safety Report 7573663-X (Version None)
Quarter: 2011Q2

REPORT INFORMATION
  Report Type: 
  Country: None (occurrence: None)
  Receive Date: 20110627
  Receipt Date: 20110622
  Transmission Date: 20111010
  Serious: Yes (Other)
  Sender: FDA-Public Use
  Company Number: FR-ROCHE-775095

PATIENT
  Sex: Female
  Weight: 66.5 kg

DRUGS (7)
  1. BONIVA [Suspect]
     Indication: OSTEOPOROSIS
     Dosage: ROUTE: EVERY 3 MONTHS
     Route: 042
     Dates: start: 20101013, end: 20101013
  2. TRAMADOL HCL [Concomitant]
     Dosage: TOPALGIC 50
  3. ESTROGENIC SUBSTANCE [Concomitant]
  4. OLMESARTAN MEDOXOMIL [Concomitant]
  5. FIXICAL [Concomitant]
  6. ZOLPIDEM [Concomitant]
  7. BISOPROLOL FUMARATE AND HYDROCHLOROTHIAZIDE [Concomitant]

REACTIONS (1)
  - ANGIOEDEMA [None]
